FAERS Safety Report 4494655-3 (Version None)
Quarter: 2004Q4

REPORT INFORMATION
  Report Type: 
  Country: None (occurrence: None)
  Receive Date: 20041103
  Receipt Date: 20041020
  Transmission Date: 20050328
  Serious: Yes (Hospitalization)
  Sender: FDA-Public Use
  Company Number: 2004AP05457

PATIENT
  Age: 82 Year
  Sex: Male

DRUGS (3)
  1. IRESSA [Suspect]
     Indication: LUNG NEOPLASM MALIGNANT
     Dosage: 250 MG QOD PO
     Route: 048
  2. ITRIZOLE [Concomitant]
  3. NO MATCH [Concomitant]

REACTIONS (1)
  - CARDIAC FAILURE [None]
